FAERS Safety Report 12240228 (Version 2)
Quarter: 2016Q2

REPORT INFORMATION
  Report Type: Spontaneous
  Country: IT (occurrence: IT)
  Receive Date: 20160405
  Receipt Date: 20160420
  Transmission Date: 20160815
  Serious: Yes (Other)
  Sender: FDA-Public Use
  Company Number: IT-PFIZER INC-2016178445

PATIENT
  Age: 53 Year
  Sex: Female

DRUGS (1)
  1. TRIATEC [Suspect]
     Active Substance: RAMIPRIL
     Indication: HYPERTENSION
     Dosage: 1 DF, DAILY
     Route: 065

REACTIONS (3)
  - Hypertensive crisis [Recovering/Resolving]
  - Drug ineffective [Unknown]
  - No therapeutic response [Unknown]

NARRATIVE: CASE EVENT DATE: 20160316
